FAERS Safety Report 11941659 (Version 1)
Quarter: 2016Q1

REPORT INFORMATION
  Report Type: Report from Study
  Country: US (occurrence: US)
  Receive Date: 20160123
  Receipt Date: 20160123
  Transmission Date: 20160526
  Serious: Yes (Other)
  Sender: FDA-Public Use
  Company Number: US-AMGEN-USASL2016004480

PATIENT
  Age: 57 Year
  Sex: Female

DRUGS (1)
  1. ENBREL [Suspect]
     Active Substance: ETANERCEPT
     Indication: RHEUMATOID ARTHRITIS
     Dosage: UNK, (1 AUTOINJECTOR EVERY 2 WEEKS OR EVERY WEEK)
     Route: 065
     Dates: start: 2005

REACTIONS (4)
  - Wrong technique in product usage process [Unknown]
  - Drug effect decreased [Unknown]
  - Injection site discomfort [Unknown]
  - Rheumatoid arthritis [Unknown]

NARRATIVE: CASE EVENT DATE: 2015
